FAERS Safety Report 23234244 (Version 4)
Quarter: 2023Q4

REPORT INFORMATION
  Report Type: Report from Study
  Country: HU (occurrence: HU)
  Receive Date: 20231128
  Receipt Date: 20231225
  Transmission Date: 20240109
  Serious: Yes (Death, Hospitalization)
  Sender: FDA-Public Use
  Company Number: HU-ABBVIE-5510474

PATIENT
  Sex: Male

DRUGS (6)
  1. CARBIDOPA\LEVODOPA [Suspect]
     Active Substance: CARBIDOPA\LEVODOPA
     Indication: Parkinson^s disease
     Dosage: MORNING DOSE: 5.0 ML; CONTINUOUS DOSE: 3.8 ML/HOUR; EXTRA DOSE: 1.0 ML
     Route: 050
     Dates: start: 20190416, end: 20231117
  2. CARBIDOPA\LEVODOPA [Suspect]
     Active Substance: CARBIDOPA\LEVODOPA
  3. MIRVEDOL [Concomitant]
     Indication: Cognitive disorder
     Dosage: FORM STRENGTH 20 MILLIGRAM?HALF TABLET DAILY
     Dates: start: 2019
  4. METFORMIN HYDROCHLORIDE [Concomitant]
     Active Substance: METFORMIN HYDROCHLORIDE
     Indication: Glucose tolerance impaired
     Dosage: FORM STRENGTH 500 MILLIGRAM
     Dates: start: 2019
  5. ACETYLSALICYLIC ACID KRKA [Concomitant]
     Indication: Prophylaxis
     Dosage: FORM STRENGTH: 100 MILLIGRAM
     Dates: start: 2019
  6. ASA KRKA [Concomitant]
     Indication: Prophylaxis
     Dosage: FORM STRENGTH 100 MILLIGRAM
     Dates: start: 2019

REACTIONS (9)
  - Death [Fatal]
  - Embedded device [Recovered/Resolved]
  - Device dislocation [Not Recovered/Not Resolved]
  - Pneumonia [Recovering/Resolving]
  - Device difficult to use [Not Recovered/Not Resolved]
  - Pyrexia [Unknown]
  - Device occlusion [Not Recovered/Not Resolved]
  - Peritonitis [Unknown]
  - Device kink [Not Recovered/Not Resolved]

NARRATIVE: CASE EVENT DATE: 20231117
